FAERS Safety Report 5906080-6 (Version None)
Quarter: 2008Q4

REPORT INFORMATION
  Report Type: 
  Country: None (occurrence: None)
  Receive Date: 20081002
  Receipt Date: 20080919
  Transmission Date: 20090506
  Serious: Yes (Other)
  Sender: FDA-Public Use
  Company Number: PHHY2008JP22404

PATIENT
  Age: 58 Year
  Sex: Female

DRUGS (6)
  1. LAMISIL [Suspect]
     Indication: ONYCHOMYCOSIS
     Dosage: UNK
     Route: 048
     Dates: start: 20080806
  2. BEZATOL SR [Suspect]
     Indication: ONYCHOMYCOSIS
     Dosage: UNK
     Route: 048
     Dates: end: 20080917
  3. METFORMIN HCL [Suspect]
     Dosage: UNK
     Route: 048
     Dates: end: 20080917
  4. AMARYL [Suspect]
     Route: 048
  5. HERBESSER ^DELTA^ [Suspect]
     Dosage: UNK
     Route: 048
  6. BIGUANIDES [Concomitant]
     Indication: DIABETES MELLITUS
     Route: 065

REACTIONS (2)
  - BLOOD CREATINE PHOSPHOKINASE INCREASED [None]
  - BLOOD CREATININE INCREASED [None]
